FAERS Safety Report 8066062-8 (Version None)
Quarter: 2012Q1

REPORT INFORMATION
  Report Type: 
  Country: None (occurrence: None)
  Receive Date: 20120124
  Receipt Date: 20120113
  Transmission Date: 20120608
  Serious: Yes (Hospitalization)
  Sender: FDA-Public Use
  Company Number: FR-JNJFOC-20120108715

PATIENT
  Age: 87 Year
  Sex: Male

DRUGS (2)
  1. ACETAMINOPHEN AND TRAMADOL HCL [Suspect]
     Indication: ABDOMINAL PAIN UPPER
     Route: 048
     Dates: start: 20111216, end: 20111227
  2. NAROPIN [Suspect]
     Indication: ABDOMINAL PAIN UPPER
     Route: 050
     Dates: start: 20111216, end: 20111227

REACTIONS (2)
  - ERYTHEMA [None]
  - RASH [None]
